FAERS Safety Report 6930942-4 (Version None)
Quarter: 2010Q3

REPORT INFORMATION
  Report Type: 
  Country: None (occurrence: None)
  Receive Date: 20100817
  Receipt Date: 20100817
  Transmission Date: 20110219
  Serious: Yes (Other)
  Sender: FDA-Public Use
  Company Number: None

PATIENT
  Sex: Female
  Weight: 102.7 kg

DRUGS (1)
  1. AVELOX [Suspect]
     Indication: SINUSITIS
     Dosage: 400MG 1XDAILY FOR 10 DAYS
     Dates: start: 20100116, end: 20100119

REACTIONS (3)
  - ABASIA [None]
  - TENDONITIS [None]
  - WEIGHT BEARING DIFFICULTY [None]
